FAERS Safety Report 9136421 (Version 1)
Quarter: 2013Q1

REPORT INFORMATION
  Report Type: Spontaneous
  Country: US (occurrence: US)
  Receive Date: 20130219
  Receipt Date: 20130219
  Transmission Date: 20140127
  Serious: No
  Sender: FDA-Public Use
  Company Number: US-BRISTOL-MYERS SQUIBB COMPANY-16834327

PATIENT
  Age: 53 Year
  Sex: Female
  Weight: 92.97 kg

DRUGS (5)
  1. ORENCIA [Suspect]
     Indication: RHEUMATOID ARTHRITIS
     Dosage: LAST INF: 13JUL12, DURATION:2.5-3MONTHS
     Route: 042
  2. METHOTREXATE [Concomitant]
  3. FLEXERIL [Concomitant]
  4. VITAMIN D [Concomitant]
  5. NAPROXEN [Concomitant]

REACTIONS (1)
  - Local swelling [Unknown]
